FAERS Safety Report 6326231-1 (Version None)
Quarter: 2009Q3

REPORT INFORMATION
  Report Type: 
  Country: None (occurrence: None)
  Receive Date: 20090820
  Receipt Date: 20090810
  Transmission Date: 20100115
  Serious: Yes (Death, Other)
  Sender: FDA-Public Use
  Company Number: GXKR2009US09055

PATIENT
  Age: 21 Year
  Sex: Male

DRUGS (4)
  1. BLEOMYCIN (NGX) (BLEOMYCIN SULFATE) UNKNOWN [Suspect]
     Indication: BRAIN NEOPLASM MALIGNANT
     Dosage: 15 MG/M2
  2. CARBOPLATIN [Suspect]
     Indication: BRAIN NEOPLASM MALIGNANT
     Dosage: 500 MG/M2
  3. ETOPOSIDE [Suspect]
     Indication: BRAIN NEOPLASM MALIGNANT
     Dosage: 150 MG/M2
  4. RADIATION THERAPY (NO INGREDIENTS/SUBSTANCES) [Concomitant]

REACTIONS (6)
  - LUNG DISORDER [None]
  - PANCYTOPENIA [None]
  - PNEUMONIA [None]
  - PULMONARY FUNCTION TEST DECREASED [None]
  - PULMONARY HAEMORRHAGE [None]
  - RESPIRATORY FAILURE [None]
